FAERS Safety Report 13358822 (Version 3)
Quarter: 2017Q3

REPORT INFORMATION
  Report Type: Spontaneous
  Country: IT (occurrence: IT)
  Receive Date: 20170322
  Receipt Date: 20170802
  Transmission Date: 20171127
  Serious: Yes (Hospitalization)
  Sender: FDA-Public Use
  Company Number: PHHY2017IT039809

PATIENT
  Age: 20 Year
  Sex: Male

DRUGS (10)
  1. SUBOXONE [Suspect]
     Active Substance: BUPRENORPHINE HYDROCHLORIDE\NALOXONE HYDROCHLORIDE
     Dosage: 8 MG, UNK
     Route: 065
     Dates: start: 20160303
  2. SUBOXONE [Suspect]
     Active Substance: BUPRENORPHINE HYDROCHLORIDE\NALOXONE HYDROCHLORIDE
     Dosage: 4 MG, UNK
     Route: 065
     Dates: start: 20160705
  3. SUBOXONE [Suspect]
     Active Substance: BUPRENORPHINE HYDROCHLORIDE\NALOXONE HYDROCHLORIDE
     Dosage: 6 MG, UNK
     Route: 065
     Dates: start: 20160613
  4. KETOPROFEN. [Suspect]
     Active Substance: KETOPROFEN
     Indication: TOOTHACHE
     Dosage: 1 DF, UNK
     Route: 065
  5. PARACETAMOL [Suspect]
     Active Substance: ACETAMINOPHEN
     Indication: PAIN
     Route: 065
  6. IBUPROFEN. [Suspect]
     Active Substance: IBUPROFEN
     Indication: TOOTHACHE
     Route: 065
  7. SUBOXONE [Suspect]
     Active Substance: BUPRENORPHINE HYDROCHLORIDE\NALOXONE HYDROCHLORIDE
     Dosage: 2 MG, UNK
     Route: 065
     Dates: start: 20160915
  8. SUBOXONE [Suspect]
     Active Substance: BUPRENORPHINE HYDROCHLORIDE\NALOXONE HYDROCHLORIDE
     Indication: PRODUCT USED FOR UNKNOWN INDICATION
     Dosage: 6 MG, UNK
     Route: 060
     Dates: start: 20160202
  9. PARACETAMOL [Suspect]
     Active Substance: ACETAMINOPHEN
     Dosage: 1 G, TID
     Route: 048
  10. SUBOXONE [Suspect]
     Active Substance: BUPRENORPHINE HYDROCHLORIDE\NALOXONE HYDROCHLORIDE
     Dosage: 1 MG, UNK
     Route: 065
     Dates: start: 201612

REACTIONS (7)
  - Supraventricular tachycardia [Recovered/Resolved]
  - Nephrolithiasis [Unknown]
  - Condition aggravated [Unknown]
  - Tubulointerstitial nephritis [Unknown]
  - Acute kidney injury [Unknown]
  - Drug abuse [Unknown]
  - Blood thyroid stimulating hormone increased [Unknown]

NARRATIVE: CASE EVENT DATE: 20160623
